FAERS Safety Report 8032905-7 (Version None)
Quarter: 2012Q1

REPORT INFORMATION
  Report Type: 
  Country: None (occurrence: None)
  Receive Date: 20120110
  Receipt Date: 20111228
  Transmission Date: 20120608
  Serious: Yes (Hospitalization)
  Sender: FDA-Public Use
  Company Number: US-ELI_LILLY_AND_COMPANY-US201011006039

PATIENT
  Sex: Female
  Weight: 56.417 kg

DRUGS (8)
  1. FORTEO [Suspect]
     Dosage: 20 UG, DAILY (1/D)
     Route: 065
  2. FORTEO [Suspect]
     Indication: OSTEOPOROSIS
     Dosage: 20 UG, DAILY (1/D)
     Route: 065
     Dates: start: 20101001
  3. CALCIUM ACETATE [Concomitant]
  4. VITAMIN D [Concomitant]
  5. TRAMADOL HCL [Concomitant]
     Dosage: 50 MG, UNK
  6. FORTEO [Suspect]
     Dosage: 20 UG, DAILY (1/D)
     Route: 065
  7. FORTEO [Suspect]
     Dosage: 20 UG, QD
     Dates: end: 20111118
  8. ZOCOR [Concomitant]
     Dosage: 20 MG, UNK

REACTIONS (18)
  - BACK PAIN [None]
  - HYPERSOMNIA [None]
  - FEELING ABNORMAL [None]
  - PERSONALITY CHANGE [None]
  - CYSTITIS [None]
  - HYPOVITAMINOSIS [None]
  - ARTHRALGIA [None]
  - FATIGUE [None]
  - MUSCLE DISORDER [None]
  - EXERCISE TOLERANCE DECREASED [None]
  - MEMORY IMPAIRMENT [None]
  - BLOOD PRESSURE INCREASED [None]
  - IRRITABILITY [None]
  - CARDIAC DISORDER [None]
  - PAIN [None]
  - MUSCLE SPASMS [None]
  - NERVOUS SYSTEM DISORDER [None]
  - CHEST PAIN [None]
